FAERS Safety Report 6876429-9 (Version None)
Quarter: 2010Q3

REPORT INFORMATION
  Report Type: 
  Country: None (occurrence: None)
  Receive Date: 20100727
  Receipt Date: 20100722
  Transmission Date: 20110219
  Serious: Yes (Hospitalization)
  Sender: FDA-Public Use
  Company Number: FR-ROCHE-716908

PATIENT
  Sex: Female

DRUGS (8)
  1. CLONAZEPAM [Suspect]
     Indication: NEURALGIA
     Dosage: INDICATION REPORTED AS NEUROPATHIC PAIN AND NEURALGIA
     Route: 048
     Dates: start: 20100610, end: 20100623
  2. TEGRETOL [Suspect]
     Indication: NEURALGIA
     Dosage: INDICATION REPORTED AS NEUROPATHIC PAIN AND NEURALGIA
     Route: 048
     Dates: start: 20100610, end: 20100623
  3. LYRICA [Suspect]
     Indication: NEURALGIA
     Dosage: INDICATION REPORTED AS NEUROPATHIC PAIN AND NEURALGIA
     Route: 048
     Dates: start: 20100531, end: 20100610
  4. LYRICA [Suspect]
     Route: 048
  5. LANSOPRAZOLE [Concomitant]
     Dosage: TREATMENT INTRODUCED FOR YEARS
  6. EFFERALGAN [Concomitant]
     Dosage: TREATMENT INTRODUCED FOR YEARS
  7. ART 50 [Concomitant]
     Dosage: TREATMENT INTRODUCED FOR YEARS
  8. CHONDROSULF [Concomitant]
     Dosage: TREATMENT INTRODUCED FOR YEARS

REACTIONS (1)
  - TOXIC SKIN ERUPTION [None]
